FAERS Safety Report 9809048 (Version 1)
Quarter: 2014Q1

REPORT INFORMATION
  Report Type: Spontaneous
  Country: IT (occurrence: IT)
  Receive Date: 20140110
  Receipt Date: 20140110
  Transmission Date: 20141002
  Serious: Yes (Hospitalization)
  Sender: FDA-Public Use
  Company Number: PHHY2014IT001678

PATIENT
  Age: 40 Year
  Sex: Male

DRUGS (6)
  1. RISPERIDONE [Suspect]
  2. PHENOBARBITAL [Suspect]
  3. LORAZEPAM [Suspect]
  4. BISOPROLOL [Suspect]
  5. CLOTIAZEPAM [Suspect]
  6. OLANZAPINE [Concomitant]
     Indication: BORDERLINE PERSONALITY DISORDER
     Dosage: 5 MG, QD

REACTIONS (8)
  - Respiratory acidosis [Recovered/Resolved]
  - Coma [Recovered/Resolved]
  - Suicide attempt [Unknown]
  - Stress cardiomyopathy [Recovered/Resolved]
  - Electrocardiogram ST segment elevation [Recovered/Resolved]
  - Ejection fraction decreased [Recovered/Resolved]
  - Toxicity to various agents [Recovered/Resolved]
  - Drug level increased [Recovered/Resolved]
